FAERS Safety Report 5519982-X (Version None)
Quarter: 2007Q4

REPORT INFORMATION
  Report Type: 
  Country: None (occurrence: None)
  Receive Date: 20071116
  Receipt Date: 20071107
  Transmission Date: 20080405
  Serious: Yes (Death, Life-Threatening, Hospitalization)
  Sender: FDA-Public Use
  Company Number: BR-ABBOTT-07P-020-0417531-00

PATIENT
  Sex: Female
  Weight: 67.9 kg

DRUGS (7)
  1. RITONAVIR SOFT GELATIN CAPSULES [Suspect]
     Indication: HIV INFECTION
     Route: 048
     Dates: start: 20060824, end: 20070807
  2. TMC125 [Concomitant]
     Indication: HIV INFECTION
     Route: 048
     Dates: start: 20060824, end: 20070807
  3. TMC114 [Concomitant]
     Indication: HIV INFECTION
     Route: 048
     Dates: start: 20060824, end: 20070807
  4. LAMIVUDINE [Concomitant]
     Indication: DRUG USE FOR UNKNOWN INDICATION
     Route: 048
     Dates: start: 20050905, end: 20070808
  5. STAVUDINE [Concomitant]
     Indication: HIV INFECTION
     Route: 048
     Dates: start: 20060824, end: 20070808
  6. TENOFOVIR DISOPROXIL FUMARATE [Concomitant]
     Indication: HIV INFECTION
     Route: 048
     Dates: start: 20060824, end: 20070808
  7. PENTAMIDINE ISETHIONATE [Concomitant]
     Indication: ANTIFUNGAL PROPHYLAXIS
     Route: 055
     Dates: end: 20070808

REACTIONS (4)
  - HYPOVOLAEMIC SHOCK [None]
  - PNEUMONIA [None]
  - SEPTIC SHOCK [None]
  - VAGINAL HAEMORRHAGE [None]
